FAERS Safety Report 5996578-7 (Version None)
Quarter: 2008Q4

REPORT INFORMATION
  Report Type: 
  Country: None (occurrence: None)
  Receive Date: 20081212
  Receipt Date: 20081017
  Transmission Date: 20090506
  Serious: No
  Sender: FDA-Public Use
  Company Number: US-ABBOTT-08P-163-0482807-00

PATIENT
  Sex: Female
  Weight: 56.296 kg

DRUGS (4)
  1. HUMIRA [Suspect]
     Indication: CROHN'S DISEASE
     Dosage: LOADING
     Route: 058
     Dates: start: 20081017
  2. YAZ [Concomitant]
     Indication: CONTRACEPTION
     Route: 048
     Dates: start: 20060101
  3. BUPROPION HCL [Concomitant]
     Indication: DEPRESSION
     Route: 048
     Dates: start: 20040101
  4. MESALAMINE [Concomitant]
     Indication: CROHN'S DISEASE
     Dosage: 2 CAPSULES
     Route: 048
     Dates: start: 20081001

REACTIONS (3)
  - ACCIDENTAL EXPOSURE [None]
  - INJECTION SITE HAEMATOMA [None]
  - INJECTION SITE IRRITATION [None]
